FAERS Safety Report 4881290-8 (Version None)
Quarter: 2005Q4

REPORT INFORMATION
  Report Type: 
  Country: None (occurrence: None)
  Receive Date: 20051212
  Receipt Date: 20050504
  Transmission Date: 20060501
  Serious: Yes (Life-Threatening, Hospitalization)
  Sender: FDA-Public Use
  Company Number: 05P-163-0299976-00

PATIENT
  Age: 60 Year
  Sex: Male

DRUGS (3)
  1. TARKA [Suspect]
     Indication: BLOOD PRESSURE INCREASED
     Dosage: 1 TABLET, 1 IN 1 D, PER ORAL
     Route: 048
     Dates: start: 20041201, end: 20050503
  2. GLIMEPIRIDE [Concomitant]
  3. NADOLOL [Concomitant]

REACTIONS (2)
  - BRADYCARDIA [None]
  - HYPERKALAEMIA [None]
